FAERS Safety Report 4477806-6 (Version None)
Quarter: 2004Q4

REPORT INFORMATION
  Report Type: 
  Country: None (occurrence: None)
  Receive Date: 20041014
  Receipt Date: 20041001
  Transmission Date: 20050328
  Serious: Yes (Death)
  Sender: FDA-Public Use
  Company Number: HQWYE635407OCT04

PATIENT
  Age: 50 Year

DRUGS (2)
  1. INDERAL [Suspect]
     Dosage: ORAL
     Route: 048
  2. CLOMIPRAMINE HCL [Suspect]
     Dosage: ORAL
     Route: 048

REACTIONS (2)
  - CARDIO-RESPIRATORY ARREST [None]
  - COMPLETED SUICIDE [None]
